FAERS Safety Report 14858954 (Version 1)
Quarter: 2018Q2

REPORT INFORMATION
  Report Type: Spontaneous
  Country: US (occurrence: US)
  Receive Date: 20180508
  Receipt Date: 20180508
  Transmission Date: 20180711
  Serious: Yes (Congenital Anomaly, Other)
  Sender: FDA-Public Use
  Company Number: PHEH2018US016739

PATIENT
  Sex: Male

DRUGS (1)
  1. ZOFRAN [Suspect]
     Active Substance: ONDANSETRON HYDROCHLORIDE
     Indication: FOETAL EXPOSURE DURING PREGNANCY
     Route: 064

REACTIONS (10)
  - Congenital renal disorder [Unknown]
  - Emotional distress [Unknown]
  - Congenital anomaly [Unknown]
  - Congenital hydronephrosis [Unknown]
  - Congenital megaureter [Unknown]
  - Pain [Unknown]
  - Anxiety [Unknown]
  - Ureteric dilatation [Unknown]
  - Foetal exposure during pregnancy [Unknown]
  - Injury [Unknown]
